FAERS Safety Report 8808903 (Version 1)
Quarter: 2012Q4

REPORT INFORMATION
  Report Type: Spontaneous
  Country: US (occurrence: None)
  Receive Date: 20120920
  Receipt Date: 20120920
  Transmission Date: 20130627
  Serious: Yes (Other)
  Sender: FDA-Public Use
  Company Number: None

PATIENT
  Age: 48 Year
  Sex: Male
  Weight: 81.65 kg

DRUGS (1)
  1. PRAVASTATIN [Suspect]
     Indication: BLOOD CHOLESTEROL
     Dosage: 40 mg 1 at Bedtime oral
     Route: 048
     Dates: start: 20120806, end: 20120824

REACTIONS (5)
  - Rash [None]
  - Back pain [None]
  - Myalgia [None]
  - Oropharyngeal pain [None]
  - Memory impairment [None]
